FAERS Safety Report 6651361-4 (Version None)
Quarter: 2010Q1

REPORT INFORMATION
  Report Type: 
  Country: None (occurrence: None)
  Receive Date: 20100325
  Receipt Date: 20100317
  Transmission Date: 20100710
  Serious: Yes (Hospitalization)
  Sender: FDA-Public Use
  Company Number: FR-BAXTER-2010BH007365

PATIENT
  Age: 51 Year
  Sex: Female

DRUGS (15)
  1. ENDOXAN BAXTER [Suspect]
     Indication: LUPUS-LIKE SYNDROME
     Route: 048
     Dates: start: 20091224, end: 20100217
  2. ENDOXAN BAXTER [Suspect]
     Route: 040
     Dates: start: 20090202, end: 20091012
  3. ENDOXAN BAXTER [Suspect]
     Route: 040
     Dates: start: 20091204, end: 20091204
  4. MABTHERA [Suspect]
     Indication: LUPUS-LIKE SYNDROME
     Route: 042
     Dates: start: 20091120
  5. MABTHERA [Suspect]
     Route: 042
     Dates: start: 20091204
  6. CORTICOSTEROIDS [Suspect]
     Indication: LUPUS-LIKE SYNDROME
     Route: 048
     Dates: start: 20090201
  7. CORTICOSTEROIDS [Suspect]
     Route: 048
     Dates: start: 20091101
  8. CORTICOSTEROIDS [Suspect]
     Route: 042
     Dates: start: 20090201
  9. CORTICOSTEROIDS [Suspect]
     Route: 042
     Dates: start: 20091101
  10. PLAQUENIL [Concomitant]
     Indication: LUPUS-LIKE SYNDROME
     Route: 048
     Dates: start: 20090301, end: 20091120
  11. PLAQUENIL [Concomitant]
     Route: 048
     Dates: start: 20091201
  12. IMUREL [Concomitant]
     Indication: LUPUS-LIKE SYNDROME
     Route: 048
     Dates: start: 20091101, end: 20091201
  13. VANCOMYCIN [Concomitant]
     Indication: OSTEITIS
     Route: 065
     Dates: start: 20091230, end: 20100201
  14. FORTUM [Concomitant]
     Indication: OSTEITIS
     Route: 065
     Dates: start: 20090701, end: 20091101
  15. FORTUM [Concomitant]
     Route: 065
     Dates: start: 20091204, end: 20091230

REACTIONS (1)
  - PROGRESSIVE MULTIFOCAL LEUKOENCEPHALOPATHY [None]
